FAERS Safety Report 20814906 (Version 1)
Quarter: 2022Q2

REPORT INFORMATION
  Report Type: Spontaneous
  Country: US (occurrence: None)
  Receive Date: 20220511
  Receipt Date: 20220511
  Transmission Date: 20220721
  Serious: Yes (Other)
  Sender: FDA-Public Use
  Company Number: 2022A174655

PATIENT
  Age: 30420 Day
  Sex: Female
  Weight: 59 kg

DRUGS (1)
  1. CRESTOR [Suspect]
     Active Substance: ROSUVASTATIN CALCIUM
     Indication: Blood cholesterol
     Route: 048
     Dates: start: 2000

REACTIONS (15)
  - Carotid artery occlusion [Not Recovered/Not Resolved]
  - Peripheral arterial occlusive disease [Not Recovered/Not Resolved]
  - Toxicity to various agents [Unknown]
  - Cardiac disorder [Unknown]
  - Hepatic enzyme increased [Unknown]
  - Renal impairment [Unknown]
  - Pain [Unknown]
  - Illness [Unknown]
  - Back pain [Unknown]
  - Limb discomfort [Unknown]
  - Arteriosclerosis [Not Recovered/Not Resolved]
  - Weight increased [Unknown]
  - Pain in extremity [Unknown]
  - Blood cholesterol increased [Unknown]
  - Drug ineffective [Unknown]

NARRATIVE: CASE EVENT DATE: 20220501
